FAERS Safety Report 9238095 (Version 3)
Quarter: 2014Q2

REPORT INFORMATION
  Report Type: Report from Study
  Country: US (occurrence: US)
  Receive Date: 20130418
  Receipt Date: 20140619
  Transmission Date: 20141212
  Serious: Yes (Other)
  Sender: FDA-Public Use
  Company Number: PHEH2013US008558

PATIENT
  Age: 36 Year
  Sex: Female

DRUGS (3)
  1. ILARIS [Suspect]
     Dosage: 150 MG, EVERY 8 WEEKS
  2. ANAKINRA [Suspect]
  3. COLCHICINE [Suspect]

REACTIONS (5)
  - Liver disorder [Unknown]
  - Type III immune complex mediated reaction [Unknown]
  - Infection [Unknown]
  - Purulence [Unknown]
  - Oral infection [Unknown]
